FAERS Safety Report 14033552 (Version 1)
Quarter: 2017Q4

REPORT INFORMATION
  Report Type: Report from Study
  Country: ES (occurrence: ES)
  Receive Date: 20171003
  Receipt Date: 20171003
  Transmission Date: 20180321
  Serious: Yes (Hospitalization)
  Sender: FDA-Public Use
  Company Number: ES-ROCHE-1997783

PATIENT
  Age: 70 Year
  Sex: Female

DRUGS (8)
  1. RIVOTRIL [Suspect]
     Active Substance: CLONAZEPAM
     Indication: SUICIDE ATTEMPT
     Dosage: 10 CP?0-0-1 (AT DINNER)
     Route: 048
     Dates: start: 20170322, end: 20170322
  2. ALCOHOL. [Suspect]
     Active Substance: ALCOHOL
     Indication: SUICIDE ATTEMPT
     Route: 048
     Dates: start: 20170322, end: 20170322
  3. ADIRO [Concomitant]
     Active Substance: ASPIRIN
     Dosage: 0-1-0 (AT LUNCH)
     Route: 048
     Dates: start: 20120101
  4. PAROXETINE. [Suspect]
     Active Substance: PAROXETINE
     Indication: SUICIDE ATTEMPT
     Dosage: 12 CP?1-0-0 (AT BREAKFAST)
     Route: 048
     Dates: start: 20170322, end: 20170322
  5. SIMVASTATINA [Concomitant]
     Active Substance: SIMVASTATIN
     Indication: DYSLIPIDAEMIA
     Dosage: 0-0-1 (AT DINNER)
     Route: 048
     Dates: start: 20120101
  6. ENALAPRIL [Concomitant]
     Active Substance: ENALAPRIL
     Indication: HYPERTENSION
     Dosage: 2-0-0 (AT BREAKFAST)
     Route: 048
     Dates: start: 20120101
  7. EUTIROX [Concomitant]
     Active Substance: LEVOTHYROXINE SODIUM
     Indication: HYPOTHYROIDISM
     Dosage: 1 CP.?1-0-0 (AT BREAKFAST)
     Route: 048
     Dates: start: 20120101
  8. SINGULAIR [Concomitant]
     Active Substance: MONTELUKAST SODIUM
     Dosage: 0-0-1 (AT DINNER).
     Route: 065

REACTIONS (4)
  - Pneumonia aspiration [Recovered/Resolved]
  - Depressed level of consciousness [Recovered/Resolved]
  - Rhabdomyolysis [Recovered/Resolved]
  - Acute kidney injury [Recovered/Resolved]

NARRATIVE: CASE EVENT DATE: 20170322
